FAERS Safety Report 9921689 (Version 1)
Quarter: 2014Q1

REPORT INFORMATION
  Report Type: Spontaneous
  Country: US (occurrence: None)
  Receive Date: 20140221
  Receipt Date: 20140221
  Transmission Date: 20141002
  Serious: Yes (Other)
  Sender: FDA-Public Use
  Company Number: None

PATIENT
  Age: 59 Year
  Sex: Female
  Weight: 123 kg

DRUGS (6)
  1. CUBICIN (DAPTOMYCIN) [Suspect]
     Indication: CELLULITIS
     Dosage: Q24HRS
     Route: 042
     Dates: start: 20140116, end: 20140125
  2. VYVANSE [Concomitant]
  3. METFORMIN [Concomitant]
  4. SINGULAIR [Concomitant]
  5. ZOLPIDEM [Concomitant]
  6. VENLAFXINE [Concomitant]

REACTIONS (4)
  - Hypoaesthesia [None]
  - Paraesthesia [None]
  - Neuralgia [None]
  - Neuropathy peripheral [None]
